FAERS Safety Report 16337165 (Version 6)
Quarter: 2019Q4

REPORT INFORMATION
  Report Type: Report from Study
  Country: CA (occurrence: CA)
  Receive Date: 20190521
  Receipt Date: 20191107
  Transmission Date: 20200122
  Serious: Yes (Death, Hospitalization, Other)
  Sender: FDA-Public Use
  Company Number: CA-ROCHE-2294357

PATIENT
  Age: 67 Year
  Sex: Male

DRUGS (10)
  1. LEVOTHYROXINE. [Concomitant]
     Active Substance: LEVOTHYROXINE
  2. ELIQUIS [Concomitant]
     Active Substance: APIXABAN
     Route: 065
  3. XARELTO [Concomitant]
     Active Substance: RIVAROXABAN
  4. AVASTIN [Suspect]
     Active Substance: BEVACIZUMAB
     Indication: ASTROCYTOMA
     Route: 042
     Dates: start: 20190306, end: 20191016
  5. AVASTIN [Suspect]
     Active Substance: BEVACIZUMAB
     Indication: BRAIN NEOPLASM MALIGNANT
  6. ROSUVASTATIN. [Concomitant]
     Active Substance: ROSUVASTATIN
  7. RANITIDINE. [Concomitant]
     Active Substance: RANITIDINE
  8. DEXAMETHASONE. [Concomitant]
     Active Substance: DEXAMETHASONE
  9. TAMSULOSIN [Concomitant]
     Active Substance: TAMSULOSIN
  10. MYLAN VALACYCLOVIR [Concomitant]
     Route: 065

REACTIONS (9)
  - Hypertension [Unknown]
  - Off label use [Unknown]
  - Hypotension [Unknown]
  - Oxygen saturation decreased [Unknown]
  - Blood pressure systolic decreased [Recovered/Resolved]
  - Hypotension [Recovered/Resolved]
  - Eastern Cooperative Oncology Group performance status worsened [Unknown]
  - Death [Fatal]
  - Herpes zoster [Recovering/Resolving]

NARRATIVE: CASE EVENT DATE: 20190327
